FAERS Safety Report 15814859 (Version 1)
Quarter: 2019Q1

REPORT INFORMATION
  Report Type: Spontaneous
  Country: ES (occurrence: ES)
  Receive Date: 20190111
  Receipt Date: 20190111
  Transmission Date: 20190417
  Serious: Yes (Death, Hospitalization, Other)
  Sender: FDA-Public Use
  Company Number: ES-ACCORD-101563

PATIENT
  Age: 48 Year
  Sex: Male

DRUGS (4)
  1. TACROLIMUS. [Suspect]
     Active Substance: TACROLIMUS
     Indication: IMMUNOSUPPRESSANT DRUG THERAPY
     Dosage: PROLONGED RELEASE?DOSE REDUCED TO 1 MG FROM SEP-2017
  2. ELBASVIR/GRAZOPREVIR [Interacting]
     Active Substance: ELBASVIR\GRAZOPREVIR
     Indication: CHRONIC HEPATITIS C
     Dosage: ELBASVIR / GRAZOPREVIR 50/100MG
     Dates: start: 201709, end: 201711
  3. MYCOPHENOLIC ACID. [Suspect]
     Active Substance: MYCOPHENOLIC ACID
     Indication: IMMUNOSUPPRESSANT DRUG THERAPY
     Dosage: PROLONGED RELEASE
  4. PREDNISONE/PREDNISONE ACETATE [Suspect]
     Active Substance: PREDNISONE ACETATE
     Indication: IMMUNOSUPPRESSANT DRUG THERAPY
     Dosage: PROLONGED RELEASE

REACTIONS (4)
  - Multiple organ dysfunction syndrome [Fatal]
  - Drug interaction [Unknown]
  - Drug level increased [Unknown]
  - Septic shock [Fatal]

NARRATIVE: CASE EVENT DATE: 201709
